FAERS Safety Report 8197691 (Version 2)
Quarter: 2012Q4

REPORT INFORMATION
  Report Type: 
  Country: US (occurrence: US)
  Receive Date: 20111025
  Receipt Date: 20121204
  Transmission Date: 20130627
  Serious: Yes (Other)
  Sender: FDA-Public Use
  Company Number: US-ELI_LILLY_AND_COMPANY-US201110004575

PATIENT
  Sex: Male

DRUGS (14)
  1. BYETTA [Suspect]
     Dosage: UNK
     Route: 058
     Dates: start: 20070127, end: 20091004
  2. LASIX [Concomitant]
  3. GLIPIZIDE [Concomitant]
  4. LIPITOR [Concomitant]
  5. ZETIA [Concomitant]
  6. SYNTHROID [Concomitant]
  7. CLONIDINE [Concomitant]
  8. LABETALOL [Concomitant]
  9. NEURONTIN [Concomitant]
  10. FEOSOL [Concomitant]
  11. MULTIVITAMIN [Concomitant]
  12. ACTOS [Concomitant]
  13. CARDURA [Concomitant]
  14. ASPIRIN [Concomitant]

REACTIONS (2)
  - Renal failure chronic [Not Recovered/Not Resolved]
  - Pancreatitis [Unknown]
